FAERS Safety Report 21025017 (Version 1)
Quarter: 2022Q2

REPORT INFORMATION
  Report Type: Report from Study
  Country: BR (occurrence: BR)
  Receive Date: 20220629
  Receipt Date: 20220629
  Transmission Date: 20220721
  Serious: Yes (Hospitalization, Other)
  Sender: FDA-Public Use
  Company Number: BR-UCBSA-2022035322

PATIENT
  Sex: Female
  Weight: 66 kg

DRUGS (10)
  1. CERTOLIZUMAB PEGOL [Suspect]
     Active Substance: CERTOLIZUMAB PEGOL
     Indication: Rheumatoid arthritis
     Dosage: 200 MILLIGRAM, EV 15 DAYS
     Route: 058
     Dates: start: 20200416, end: 2021
  2. DIPYRONE\PROMETHAZINE HYDROCHLORIDE [Concomitant]
     Active Substance: DIPYRONE\PROMETHAZINE HYDROCHLORIDE
     Indication: Pain
     Dosage: 1 DOSAGE FORM, 3X/DAY (TID)
     Route: 048
  3. TORSILAX [Concomitant]
     Active Substance: ACETAMINOPHEN\CAFFEINE\CARISOPRODOL\DICLOFENAC
     Indication: Pain
     Dosage: UNK, WHEN FEEL PAIN
     Route: 048
  4. ASPIRIN\CAFFEINE [Concomitant]
     Active Substance: ASPIRIN\CAFFEINE
     Indication: Pain
     Dosage: UNK, WHEN FEEL PAIN
     Route: 048
  5. ANADOR [KETOROLAC TROMETHAMINE] [Concomitant]
     Indication: Pain
     Dosage: UNK, WHEN FEEL PAIN
     Route: 048
  6. SPIRONOLACTONE [Concomitant]
     Active Substance: SPIRONOLACTONE
     Indication: Product used for unknown indication
     Dosage: 250 MILLIGRAM, ONCE DAILY (QD)
     Route: 048
  7. SIMVASTATIN [Concomitant]
     Active Substance: SIMVASTATIN
     Indication: Pain
     Dosage: 40 MILLIGRAM, ONCE DAILY (QD)
     Route: 048
  8. TOFACITINIB CITRATE [Concomitant]
     Active Substance: TOFACITINIB CITRATE
     Indication: Pain
     Dosage: 2 DOSAGE FORM, ONCE DAILY (QD)
     Route: 048
  9. OMEPRAZOLE [Concomitant]
     Active Substance: OMEPRAZOLE
     Indication: Prophylaxis
     Dosage: 1 DOSAGE FORM, ONCE DAILY (QD)
     Route: 048
  10. CALCIUM [Concomitant]
     Active Substance: CALCIUM
     Indication: Product used for unknown indication
     Dosage: 2 DOSAGE FORM, ONCE DAILY (QD)
     Route: 048

REACTIONS (3)
  - Drug-induced liver injury [Unknown]
  - Pain [Unknown]
  - Drug ineffective [Unknown]

NARRATIVE: CASE EVENT DATE: 20210101
